FAERS Safety Report 24364710 (Version 1)
Quarter: 2024Q3

REPORT INFORMATION
  Report Type: Spontaneous
  Country: GB (occurrence: GB)
  Receive Date: 20240926
  Receipt Date: 20240926
  Transmission Date: 20241016
  Serious: Yes (Other)
  Sender: ESPERION THERAPEUTICS
  Company Number: None

PATIENT
  Age: 66 Year
  Sex: Female
  Weight: 57 kg

DRUGS (3)
  1. BEMPEDOIC ACID [Suspect]
     Active Substance: BEMPEDOIC ACID
     Indication: Cerebrovascular accident
     Dosage: 180 MG, QD
     Route: 065
     Dates: start: 202311, end: 202409
  2. CLOPIDOGREL [Concomitant]
     Active Substance: CLOPIDOGREL BISULFATE
     Indication: Cerebrovascular accident
     Dosage: UNK
     Route: 065
     Dates: start: 202311
  3. AMLODIPINE [Concomitant]
     Active Substance: AMLODIPINE BESYLATE
     Indication: Cerebrovascular accident
     Dosage: UNK
     Route: 065
     Dates: start: 202311

REACTIONS (3)
  - Medication error [Unknown]
  - Gastrointestinal pain [Not Recovered/Not Resolved]
  - Off label use [Recovered/Resolved]

NARRATIVE: CASE EVENT DATE: 20231101
